FAERS Safety Report 6152968-3 (Version None)
Quarter: 2009Q2

REPORT INFORMATION
  Report Type: 
  Country: None (occurrence: None)
  Receive Date: 20090413
  Receipt Date: 20090408
  Transmission Date: 20091009
  Serious: Yes (Other)
  Sender: FDA-Public Use
  Company Number: PL-JNJFOC-20090402263

PATIENT
  Age: 27 Year
  Sex: Male

DRUGS (2)
  1. RISPOLEPT [Suspect]
     Route: 048
  2. RISPOLEPT [Suspect]
     Indication: AGGRESSION
     Route: 048

REACTIONS (6)
  - AMNESIA [None]
  - ANXIETY [None]
  - DEMENTIA [None]
  - DISTURBANCE IN ATTENTION [None]
  - FEAR [None]
  - INSOMNIA [None]
